FAERS Safety Report 6537337-6 (Version None)
Quarter: 2010Q1

REPORT INFORMATION
  Report Type: 
  Country: None (occurrence: None)
  Receive Date: 20100114
  Receipt Date: 20091209
  Transmission Date: 20100710
  Serious: No
  Sender: FDA-Public Use
  Company Number: US-BAYER-200936015NA

PATIENT
  Age: 32 Year
  Sex: Female
  Weight: 73 kg

DRUGS (4)
  1. MIRENA [Suspect]
     Indication: CONTRACEPTION
     Dosage: CONTINUOUS
     Route: 015
     Dates: start: 20090528, end: 20091007
  2. FLEXICORT [Concomitant]
  3. LYRICA [Concomitant]
  4. VALIUM [Concomitant]
     Indication: NERVE INJURY

REACTIONS (2)
  - DEVICE EXPULSION [None]
  - VAGINAL HAEMORRHAGE [None]
